FAERS Safety Report 11484581 (Version 1)
Quarter: 2015Q3

REPORT INFORMATION
  Report Type: Spontaneous
  Country: US (occurrence: US)
  Receive Date: 20150909
  Receipt Date: 20150909
  Transmission Date: 20151125
  Serious: No
  Sender: FDA-Public Use
  Company Number: US-GLAXOSMITHKLINE-US2015127645

PATIENT
  Sex: Female

DRUGS (1)
  1. FLONASE [Suspect]
     Active Substance: FLUTICASONE PROPIONATE
     Indication: ALLERGY TO ANIMAL
     Dosage: UNK

REACTIONS (4)
  - Hypersensitivity [Unknown]
  - Malaise [Unknown]
  - Nasopharyngitis [Unknown]
  - Product use issue [Unknown]
